FAERS Safety Report 17483487 (Version 1)
Quarter: 2020Q1

REPORT INFORMATION
  Report Type: Spontaneous
  Country: US (occurrence: US)
  Receive Date: 20200302
  Receipt Date: 20200302
  Transmission Date: 20200409
  Serious: Yes (Hospitalization, Other)
  Sender: FDA-Public Use
  Company Number: US-BAYER-2020-032639

PATIENT
  Age: 59 Year
  Sex: Male

DRUGS (2)
  1. ACETYLSALICYLIC ACID [Suspect]
     Active Substance: ASPIRIN
     Indication: CORONARY ARTERY DISEASE
     Dosage: UNK
  2. ACETYLSALICYLIC ACID [Interacting]
     Active Substance: ASPIRIN
     Indication: CORONARY ARTERIAL STENT INSERTION

REACTIONS (10)
  - Haematochezia [None]
  - Subdural haemorrhage [None]
  - Haemorrhoidal haemorrhage [None]
  - Haemoglobin decreased [None]
  - Hypotension [None]
  - Rectal haemorrhage [None]
  - Large intestinal ulcer haemorrhage [None]
  - Haemodynamic instability [None]
  - Rectal ulcer [None]
  - Labelled drug-drug interaction medication error [None]
